FAERS Safety Report 25602188 (Version 1)
Quarter: 2025Q3

REPORT INFORMATION
  Report Type: Report from Study
  Country: JP (occurrence: JP)
  Receive Date: 20250724
  Receipt Date: 20250724
  Transmission Date: 20251020
  Serious: Yes (Death, Other)
  Sender: SANOFI AVENTIS
  Company Number: JP-DialogSolutions-SAAVPROD-PI802274-C1

PATIENT
  Age: 3 Year
  Sex: Male

DRUGS (1)
  1. ALEMTUZUMAB [Suspect]
     Active Substance: ALEMTUZUMAB
     Indication: Allogenic stem cell transplantation
     Dosage: 0.16 MG/KG, QD
     Route: 041

REACTIONS (3)
  - Multiple organ dysfunction syndrome [Fatal]
  - Thrombotic thrombocytopenic purpura [Fatal]
  - Pulmonary haemorrhage [Fatal]
